FAERS Safety Report 19028222 (Version 1)
Quarter: 2021Q1

REPORT INFORMATION
  Report Type: Spontaneous
  Country: DE (occurrence: DE)
  Receive Date: 20210318
  Receipt Date: 20210318
  Transmission Date: 20210420
  Serious: Yes (Other)
  Sender: FDA-Public Use
  Company Number: DE-TEVA-2021-DE-1889845

PATIENT
  Age: 72 Year
  Sex: Male

DRUGS (15)
  1. LIMPTAR [Concomitant]
     Active Substance: AMINOPHYLLINE\QUININE SULFATE
     Indication: MUSCLE SPASMS
     Dosage: INTAKE AS REQUIRED
     Route: 048
  2. LANTUS 100 E/ML SOLOSTAR FERTIGPEN [Concomitant]
     Indication: TYPE 2 DIABETES MELLITUS
     Dosage: USAGE: ONCE PER EVENING
  3. ASS HEUMANN [Concomitant]
     Indication: ANTICOAGULANT THERAPY
  4. DEKRISTOL VITAMIN D3 [Concomitant]
     Dosage: 20000 IU (INTERNATIONAL UNIT) DAILY;
  5. PREGABALIN?1A PHARMA HARTKAPSELN [Concomitant]
     Indication: DIABETIC FOOT
     Dosage: 400 MILLIGRAM DAILY;
     Route: 048
  6. PREGABALIN?1A PHARMA HARTKAPSELN [Concomitant]
     Dosage: 200 MILLIGRAM DAILY;
     Route: 048
  7. PANTOPRAZOL?RATIOPHARM 40 MG MAGENSAFTRESISTENTE TABLETTEN [Suspect]
     Active Substance: PANTOPRAZOLE SODIUM
     Indication: PROPHYLAXIS
     Dosage: 80 MILLIGRAM DAILY;
     Route: 048
     Dates: start: 20150205
  8. ASS HEUMANN [Concomitant]
     Indication: MYOCARDIAL INFARCTION
     Dosage: 100 MILLIGRAM DAILY;
     Route: 048
     Dates: start: 2014
  9. VITAMIN B KOMPLEX FORTE HEVERT [Concomitant]
     Dosage: 1 DOSAGE FORMS DAILY;
  10. CANDESARTAN?1A PHARMA [Concomitant]
     Dosage: 16 MILLIGRAM DAILY;
  11. METOHEXAL?SUCC [Concomitant]
     Dosage: 95 MILLIGRAM DAILY;
     Route: 048
  12. KREON 25.000 [Concomitant]
     Active Substance: PANCRELIPASE
     Indication: PANCREATECTOMY
     Dosage: 2?4 PIECES PER MEAL AS REQUIRED; INIDICATION: ABSENT PANCREAS AFTER SURGERY
  13. NOVAMINSULFON 500 ? 1A PHARMA [Concomitant]
     Indication: ANALGESIC THERAPY
     Dosage: INTAKE AS REQUIRED; ANALGESIC
     Route: 048
  14. ROSUVASTATIN 10 [Concomitant]
     Active Substance: ROSUVASTATIN
     Dosage: 5 MILLIGRAM DAILY;
     Route: 048
  15. INSULIN LISPRO SANOFI 100 E/ML SOLOSTAR FERTIGPEN [Concomitant]
     Indication: TYPE 2 DIABETES MELLITUS
     Dosage: USAGE: 3?3?3?2

REACTIONS (5)
  - Haemorrhagic diathesis [Not Recovered/Not Resolved]
  - Liver function test increased [Not Recovered/Not Resolved]
  - Nephrolithiasis [Not Recovered/Not Resolved]
  - Foot fracture [Unknown]
  - Calculus bladder [Not Recovered/Not Resolved]

NARRATIVE: CASE EVENT DATE: 2015
